FAERS Safety Report 15803472 (Version 3)
Quarter: 2019Q1

REPORT INFORMATION
  Report Type: Spontaneous
  Country: JP (occurrence: JP)
  Receive Date: 20190109
  Receipt Date: 20190125
  Transmission Date: 20190417
  Serious: Yes (Hospitalization, Other)
  Sender: FDA-Public Use
  Company Number: JP-JNJFOC-20190103081

PATIENT
  Age: 69 Year
  Sex: Female

DRUGS (13)
  1. RITUXIMAB. [Suspect]
     Active Substance: RITUXIMAB
     Indication: GASTRIC CANCER
     Dosage: CYCLICAL
     Route: 065
     Dates: start: 201409
  2. VINCRISTINE [Suspect]
     Active Substance: VINCRISTINE
     Indication: GASTRIC CANCER
     Dosage: CYCLICAL
     Route: 065
     Dates: start: 201409
  3. CYCLOPHOSPHAMIDE. [Suspect]
     Active Substance: CYCLOPHOSPHAMIDE
     Indication: GASTRIC CANCER
     Dosage: CYCLICAL
     Route: 065
     Dates: start: 201409
  4. DOXORUBICIN HYDROCHLORIDE. [Suspect]
     Active Substance: DOXORUBICIN HYDROCHLORIDE
     Indication: DIFFUSE LARGE B-CELL LYMPHOMA
     Dosage: CYCLICAL
     Route: 065
     Dates: start: 201409
  5. DOXORUBICIN HYDROCHLORIDE. [Suspect]
     Active Substance: DOXORUBICIN HYDROCHLORIDE
     Indication: GASTRIC CANCER
     Dosage: CYCLICAL
     Route: 065
     Dates: start: 201409
  6. METHOTREXATE. [Suspect]
     Active Substance: METHOTREXATE
     Indication: RHEUMATOID ARTHRITIS
     Route: 065
     Dates: end: 201403
  7. RITUXIMAB. [Suspect]
     Active Substance: RITUXIMAB
     Indication: DIFFUSE LARGE B-CELL LYMPHOMA
     Dosage: CYCLICAL
     Route: 065
     Dates: start: 201409
  8. DOXORUBICIN HYDROCHLORIDE. [Suspect]
     Active Substance: DOXORUBICIN HYDROCHLORIDE
     Indication: DIFFUSE LARGE B-CELL LYMPHOMA
     Dosage: CYCLICAL
     Route: 065
     Dates: start: 201409
  9. PREDNISONE. [Suspect]
     Active Substance: PREDNISONE
     Indication: GASTRIC CANCER
     Dosage: CYCLICAL
     Route: 065
     Dates: start: 201409
  10. PREDNISONE. [Suspect]
     Active Substance: PREDNISONE
     Indication: DIFFUSE LARGE B-CELL LYMPHOMA
     Dosage: CYCLICAL
     Route: 065
     Dates: start: 201409
  11. CYCLOPHOSPHAMIDE. [Suspect]
     Active Substance: CYCLOPHOSPHAMIDE
     Indication: DIFFUSE LARGE B-CELL LYMPHOMA
     Dosage: CYCLICAL
     Route: 065
     Dates: start: 201409
  12. DOXORUBICIN HYDROCHLORIDE. [Suspect]
     Active Substance: DOXORUBICIN HYDROCHLORIDE
     Indication: GASTRIC CANCER
     Dosage: CYCLICAL
     Route: 065
     Dates: start: 201409
  13. VINCRISTINE [Suspect]
     Active Substance: VINCRISTINE
     Indication: DIFFUSE LARGE B-CELL LYMPHOMA
     Dosage: CYCLICAL
     Route: 065
     Dates: start: 201409

REACTIONS (4)
  - Erythema [Recovered/Resolved]
  - Product use in unapproved indication [Unknown]
  - Off label use [Unknown]
  - Bacteraemia [Recovered/Resolved]

NARRATIVE: CASE EVENT DATE: 201409
